FAERS Safety Report 24634860 (Version 3)
Quarter: 2025Q2

REPORT INFORMATION
  Report Type: Spontaneous
  Country: DE (occurrence: DE)
  Receive Date: 20241119
  Receipt Date: 20250606
  Transmission Date: 20250716
  Serious: Yes (Hospitalization)
  Sender: SANDOZ
  Company Number: DE-ABBVIE-6000143

PATIENT
  Age: 63 Year
  Sex: Female

DRUGS (4)
  1. METHOTREXATE [Suspect]
     Active Substance: METHOTREXATE
     Route: 065
  2. METHOTREXATE [Suspect]
     Active Substance: METHOTREXATE
     Route: 065
  3. METHOTREXATE [Suspect]
     Active Substance: METHOTREXATE
     Indication: Product used for unknown indication
     Dosage: 7.500MG
     Route: 065
  4. RINVOQ [Suspect]
     Active Substance: UPADACITINIB
     Indication: Rheumatoid arthritis
     Dosage: 15.000MG QD
     Route: 048
     Dates: start: 202009

REACTIONS (4)
  - Gait spastic [Not Recovered/Not Resolved]
  - Ataxia [Not Recovered/Not Resolved]
  - Leukocyturia [Unknown]
  - Leukopenia [Unknown]

NARRATIVE: CASE EVENT DATE: 20240904
